FAERS Safety Report 10254013 (Version 1)
Quarter: 2014Q2

REPORT INFORMATION
  Report Type: Spontaneous
  Country: FR (occurrence: FR)
  Receive Date: 20140623
  Receipt Date: 20140623
  Transmission Date: 20141212
  Serious: Yes (Hospitalization)
  Sender: FDA-Public Use
  Company Number: FR-GILEAD-2014-0105737

PATIENT
  Age: 44 Year
  Sex: Male

DRUGS (10)
  1. STRIBILD [Suspect]
     Indication: HIV INFECTION
     Dosage: UNK
     Route: 048
     Dates: start: 20140428
  2. FLUOXETINE [Suspect]
     Dosage: UNK
     Route: 048
     Dates: start: 201402
  3. ATRIPLA [Concomitant]
     Indication: HIV INFECTION
     Dosage: UNK
     Route: 065
     Dates: start: 2009, end: 201404
  4. TRIATEC                            /00885601/ [Concomitant]
     Route: 065
  5. METFORMINE [Concomitant]
  6. JANUVIA [Concomitant]
     Route: 065
  7. HYPERTEN [Concomitant]
     Route: 065
  8. CRESTOR [Concomitant]
     Route: 065
  9. LEXOMIL [Concomitant]
     Route: 065
  10. ZYLORIC [Concomitant]
     Route: 065

REACTIONS (2)
  - Oedema peripheral [Not Recovered/Not Resolved]
  - Headache [Not Recovered/Not Resolved]
